FAERS Safety Report 7381167-2 (Version None)
Quarter: 2011Q1

REPORT INFORMATION
  Report Type: 
  Country: None (occurrence: None)
  Receive Date: 20110329
  Receipt Date: 20110321
  Transmission Date: 20110831
  Serious: Yes (Hospitalization)
  Sender: FDA-Public Use
  Company Number: US-AMGEN-USASP2011015388

PATIENT
  Sex: Male

DRUGS (2)
  1. INTERFERON [Concomitant]
  2. ENBREL [Suspect]
     Indication: PSORIASIS
     Dosage: 50 MG, 2 TIMES/WK
     Dates: start: 20100401

REACTIONS (3)
  - PSORIASIS [None]
  - SKIN LESION [None]
  - KNEE ARTHROPLASTY [None]
